FAERS Safety Report 21220536 (Version 1)
Quarter: 2022Q3

REPORT INFORMATION
  Report Type: Report from Study
  Country: BR (occurrence: BR)
  Receive Date: 20220817
  Receipt Date: 20220817
  Transmission Date: 20221026
  Serious: Yes (Other)
  Sender: FDA-Public Use
  Company Number: BR-CELLTRION INC.-2022BR012983

PATIENT

DRUGS (3)
  1. INFLIXIMAB [Suspect]
     Active Substance: INFLIXIMAB
     Indication: Crohn^s disease
     Dosage: 4 AMPOULES EVERY 4 WEEKS (ROUTE OF ADMINISTRATION: ENDOVENOUS)
     Dates: start: 20220809
  2. METHOTREXATE [Concomitant]
     Active Substance: METHOTREXATE
     Indication: Rheumatoid arthritis
     Dosage: 25 MILLIGRAM, ONCE A WEEK
     Route: 058
     Dates: start: 202202
  3. PREDNISONE [Concomitant]
     Active Substance: PREDNISONE
     Indication: Pain
     Dosage: 20 MG, 1 PILL PER DAY
     Route: 048
     Dates: start: 20220801

REACTIONS (5)
  - Paralysis [Unknown]
  - Rheumatic disorder [Unknown]
  - Swelling [Unknown]
  - Product dose omission issue [Unknown]
  - Product availability issue [Unknown]
